FAERS Safety Report 14275714 (Version 2)
Quarter: 2018Q1

REPORT INFORMATION
  Report Type: Spontaneous
  Country: DE (occurrence: DE)
  Receive Date: 20171212
  Receipt Date: 20180111
  Transmission Date: 20180508
  Serious: Yes (Hospitalization, Other)
  Sender: FDA-Public Use
  Company Number: DE-009507513-1712DEU005358

PATIENT
  Age: 74 Year
  Sex: Male
  Weight: 78 kg

DRUGS (6)
  1. JANUMET [Suspect]
     Active Substance: METFORMIN HYDROCHLORIDE\SITAGLIPTIN PHOSPHATE
     Indication: TYPE 2 DIABETES MELLITUS
     Dosage: UNK UNK, BID
     Route: 048
     Dates: start: 20150205, end: 20171103
  2. LERCANIDIPINE [Concomitant]
     Active Substance: LERCANIDIPINE
     Indication: HYPERTENSION
     Dosage: UNK, BID
  3. VALSARTAN. [Concomitant]
     Active Substance: VALSARTAN
     Indication: HYPERTENSION
     Dosage: UNK, QD
  4. ASS 100 [Concomitant]
     Active Substance: ASPIRIN
     Dosage: UNK, QD
  5. ATORVASTATIN [Concomitant]
     Active Substance: ATORVASTATIN
     Indication: HYPOLIPIDAEMIA
     Dosage: UNK, QD
  6. NEBIVOLOL. [Concomitant]
     Active Substance: NEBIVOLOL
     Indication: HYPERTENSION
     Dosage: UNK, QD

REACTIONS (14)
  - Pancreatitis chronic [Recovering/Resolving]
  - Chronic gastritis [Recovering/Resolving]
  - Bundle branch block left [Recovering/Resolving]
  - Pancreatic cyst [Recovering/Resolving]
  - Traumatic lung injury [Recovering/Resolving]
  - Large intestinal polypectomy [Recovering/Resolving]
  - Atrioventricular block first degree [Recovering/Resolving]
  - Renal cyst [Recovering/Resolving]
  - Colon adenoma [Recovering/Resolving]
  - Aortic dilatation [Recovering/Resolving]
  - Helicobacter test positive [Recovering/Resolving]
  - Intraductal papillary-mucinous carcinoma of pancreas [Unknown]
  - Night sweats [Recovering/Resolving]
  - Adrenal gland injury [Recovering/Resolving]

NARRATIVE: CASE EVENT DATE: 20171002
